FAERS Safety Report 4955499-9 (Version None)
Quarter: 2006Q1

REPORT INFORMATION
  Report Type: 
  Country: None (occurrence: None)
  Receive Date: 20060328
  Receipt Date: 20060321
  Transmission Date: 20060701
  Serious: Yes (Hospitalization)
  Sender: FDA-Public Use
  Company Number: US-BRISTOL-MYERS SQUIBB COMPANY-13321211

PATIENT
  Age: 43 Year
  Sex: Male
  Weight: 61 kg

DRUGS (8)
  1. TEQUIN [Suspect]
     Indication: INFECTION PROPHYLAXIS
     Dosage: 400MG SAMPLE TABLETS
     Dates: start: 20060101, end: 20060101
  2. LEVAQUIN [Concomitant]
     Dates: start: 20060227, end: 20060304
  3. CELLCEPT [Concomitant]
     Dosage: CONTINUED AT 750 MG TWICE DAILY
  4. PROGRAF [Concomitant]
     Dosage: CONTINUED AT 4 MG TWICE DAILY
  5. MAGNESIUM OXIDE [Concomitant]
  6. PREDNISONE [Concomitant]
     Dosage: CONTINUED AT 7.5 MG ONCE DAILY
  7. ACTIGALL [Concomitant]
     Dates: end: 20060101
  8. VALCYTE [Concomitant]

REACTIONS (1)
  - DIABETES MELLITUS [None]
